FAERS Safety Report 8460537 (Version 4)
Quarter: 2012Q4

REPORT INFORMATION
  Report Type: 
  Country: US (occurrence: US)
  Receive Date: 20120315
  Receipt Date: 20121221
  Transmission Date: 20130627
  Serious: Yes (Congenital Anomaly, Other)
  Sender: FDA-Public Use
  Company Number: US-PFIZER INC-2012064597

PATIENT
  Age: 1 Day
  Sex: Male
  Weight: 3.5 kg

DRUGS (20)
  1. ZOLOFT [Suspect]
     Indication: ANXIETY
     Dosage: 100 mg, 1x/day
     Route: 064
     Dates: start: 20071113
  2. ZOLOFT [Suspect]
     Dosage: 100mg half tablet
     Route: 064
     Dates: start: 20080208, end: 20081008
  3. ZOLOFT [Suspect]
     Dosage: 50 mg, 1x/day
     Route: 064
     Dates: start: 20080425, end: 20090422
  4. ZOLOFT [Suspect]
     Dosage: 100 mg, 1x/day
     Route: 064
     Dates: start: 20081008, end: 20100510
  5. SERTRALINE HCL [Suspect]
     Indication: ANXIETY
     Dosage: 50 mg, 1x/day
     Route: 064
     Dates: start: 20070529
  6. SERTRALINE HCL [Suspect]
     Indication: DEPRESSION
     Dosage: 100 mg tablets take half to one tablet once daily
     Route: 064
     Dates: start: 20070312
  7. SERTRALINE HCL [Suspect]
     Indication: MOOD DISORDER NOS
  8. TYLENOL [Concomitant]
     Dosage: UNK
     Route: 064
  9. AMOXICILLIN [Concomitant]
     Dosage: 20 ml, 3x/day
     Route: 064
     Dates: start: 20071113, end: 20100209
  10. CHROMAGEN FA [Concomitant]
     Dosage: UNK, once a day
     Route: 064
     Dates: start: 20080425
  11. FLEXERIL [Concomitant]
     Dosage: 10 mg, 3x/day
     Dates: start: 20080425
  12. PANTOPRAZOLE [Concomitant]
     Dosage: UNK
     Route: 064
  13. FLUCONAZOLE [Concomitant]
     Dosage: UNK
     Route: 064
  14. DOXYCYCLINE MONOHYDRATE [Concomitant]
     Dosage: UNK
     Route: 064
  15. TUMS [Concomitant]
     Dosage: UNK
     Route: 064
  16. ZANTAC [Concomitant]
     Dosage: UNK
     Route: 064
  17. FLINTSTONES VITAMINS [Concomitant]
     Dosage: UNK
     Route: 064
  18. IBUPROFEN [Concomitant]
     Dosage: UNK
     Route: 064
  19. PROBENECID [Concomitant]
     Dosage: UNK
     Route: 064
  20. PROTONIX [Concomitant]
     Dosage: UNK
     Route: 064

REACTIONS (15)
  - Maternal exposure during pregnancy [Unknown]
  - Coarctation of the aorta [Unknown]
  - Aorta hypoplasia [Unknown]
  - Patent ductus arteriosus [Recovered/Resolved]
  - Mitral valve hypoplasia [Recovering/Resolving]
  - Congenital mitral valve stenosis [Recovered/Resolved]
  - Ventricular hypoplasia [Recovering/Resolving]
  - Hypoplastic left heart syndrome [Unknown]
  - Atrioventricular septal defect [Unknown]
  - Congenital aortic stenosis [Recovered/Resolved]
  - Ventricular septal defect [Recovered/Resolved]
  - Bicuspid aortic valve [Unknown]
  - Right ventricular hypertrophy [Recovered/Resolved]
  - Atrial septal defect [Recovered/Resolved]
  - Tricuspid valve incompetence [Unknown]
